FAERS Safety Report 9447572 (Version 2)
Quarter: 2013Q3

REPORT INFORMATION
  Report Type: Report from Study
  Country: US (occurrence: US)
  Receive Date: 20130808
  Receipt Date: 20130809
  Transmission Date: 20140515
  Serious: Yes (Hospitalization)
  Sender: FDA-Public Use
  Company Number: US-JNJFOC-20130800593

PATIENT
  Age: 18 Year
  Sex: Female
  Weight: 57.1 kg

DRUGS (10)
  1. REMICADE [Suspect]
     Indication: CROHN^S DISEASE
     Route: 042
     Dates: start: 20090708
  2. SEASONALE [Concomitant]
     Route: 065
  3. AZATHIOPRINE [Concomitant]
     Route: 065
  4. PROMETHAZINE [Concomitant]
     Route: 065
  5. MULTIVITAMINS [Concomitant]
     Route: 065
  6. PRILOSEC [Concomitant]
     Route: 065
  7. NAPROXEN [Concomitant]
     Route: 065
  8. ZOFRAN [Concomitant]
     Route: 065
  9. IRON SULFATE [Concomitant]
     Route: 065
  10. LORAZEPAM [Concomitant]
     Route: 065

REACTIONS (1)
  - Nausea [Recovered/Resolved]
